FAERS Safety Report 4940012-2 (Version None)
Quarter: 2006Q1

REPORT INFORMATION
  Report Type: 
  Country: None (occurrence: None)
  Receive Date: 20060307
  Receipt Date: 20060224
  Transmission Date: 20060701
  Serious: Yes (Other)
  Sender: FDA-Public Use
  Company Number: MEDI-0004232

PATIENT
  Age: 7 Month
  Sex: Female

DRUGS (2)
  1. SYNAGIS [Suspect]
     Indication: ANTIVIRAL PROPHYLAXIS
     Dosage: 92.7+ 86.1  MG, 1 IN 30 D, INTRAMUSCULAR
     Route: 030
     Dates: start: 20060125, end: 20060223
  2. SYNAGIS [Suspect]
     Indication: ANTIVIRAL PROPHYLAXIS
     Dosage: 92.7+ 86.1  MG, 1 IN 30 D, INTRAMUSCULAR
     Route: 030
     Dates: start: 20060125

REACTIONS (6)
  - ANAPHYLACTIC REACTION [None]
  - CONTUSION [None]
  - ERYTHEMA MULTIFORME [None]
  - SCRATCH [None]
  - THERMAL BURN [None]
  - VICTIM OF CHILD ABUSE [None]
